FAERS Safety Report 25449219 (Version 1)
Quarter: 2025Q2

REPORT INFORMATION
  Report Type: Spontaneous
  Country: US (occurrence: US)
  Receive Date: 20250618
  Receipt Date: 20250618
  Transmission Date: 20250717
  Serious: No
  Sender: NOBELPHARMA AMERICA, LLC
  Company Number: US-Nobelpharma America, LLC-NPA-2025-01003

PATIENT
  Sex: Male

DRUGS (1)
  1. HYFTOR [Suspect]
     Active Substance: SIROLIMUS
     Indication: Angiofibroma
     Dosage: APPLY 1 APPLICATION EXTERNALLY TWICE DAILY FOR FACIAL ANGIOFIBROMAS
     Dates: start: 20231117

REACTIONS (1)
  - Erythema [Unknown]
